FAERS Safety Report 19769323 (Version 1)
Quarter: 2021Q3

REPORT INFORMATION
  Report Type: Spontaneous
  Country: IN (occurrence: IN)
  Receive Date: 20210831
  Receipt Date: 20210831
  Transmission Date: 20211014
  Serious: Yes (Hospitalization)
  Sender: FDA-Public Use
  Company Number: IN-ROCHE-2899283

PATIENT

DRUGS (2)
  1. RISTOVA [Suspect]
     Active Substance: RITUXIMAB
     Route: 065
  2. RISTOVA [Suspect]
     Active Substance: RITUXIMAB
     Indication: PRODUCT USED FOR UNKNOWN INDICATION
     Route: 065

REACTIONS (2)
  - Oxygen saturation decreased [Unknown]
  - Heart rate increased [Unknown]
